FAERS Safety Report 6520016-9 (Version None)
Quarter: 2009Q4

REPORT INFORMATION
  Report Type: 
  Country: None (occurrence: None)
  Receive Date: 20091229
  Receipt Date: 20091222
  Transmission Date: 20100525
  Serious: Yes (Other)
  Sender: FDA-Public Use
  Company Number: US-JNJFOC-20091206564

PATIENT
  Sex: Male
  Weight: 36.29 kg

DRUGS (1)
  1. CONCERTA [Suspect]
     Indication: DISTURBANCE IN ATTENTION
     Route: 048

REACTIONS (5)
  - ABNORMAL BEHAVIOUR [None]
  - INAPPROPRIATE SCHEDULE OF DRUG ADMINISTRATION [None]
  - KIDNEY INFECTION [None]
  - OFF LABEL USE [None]
  - PAIN [None]
